FAERS Safety Report 23913824 (Version 3)
Quarter: 2025Q1

REPORT INFORMATION
  Report Type: Report from Study
  Country: US (occurrence: US)
  Receive Date: 20240529
  Receipt Date: 20250211
  Transmission Date: 20250409
  Serious: Yes (Other)
  Sender: TEVA
  Company Number: US-TEVA-VS-3197932

PATIENT
  Age: 21 Year
  Sex: Female

DRUGS (3)
  1. CLARAVIS [Suspect]
     Active Substance: ISOTRETINOIN
     Indication: Product used for unknown indication
     Route: 065
     Dates: end: 20240101
  2. CLINDAMYCIN [Concomitant]
     Active Substance: CLINDAMYCIN
     Indication: Product used for unknown indication
  3. TRETINOIN [Concomitant]
     Active Substance: TRETINOIN
     Indication: Product used for unknown indication

REACTIONS (5)
  - Affective disorder [Unknown]
  - Depression [Unknown]
  - Acne [Unknown]
  - Pain of skin [Unknown]
  - Acne fulminans [Unknown]

NARRATIVE: CASE EVENT DATE: 20240101
